FAERS Safety Report 23512331 (Version 1)
Quarter: 2024Q1

REPORT INFORMATION
  Report Type: Spontaneous
  Country: CN (occurrence: CN)
  Receive Date: 20240212
  Receipt Date: 20240212
  Transmission Date: 20240409
  Serious: Yes (Disabling)
  Sender: FDA-Public Use
  Company Number: CN-002147023-NVSC2024CN027073

PATIENT
  Age: 30 Year
  Sex: Male
  Weight: 80 kg

DRUGS (2)
  1. TEGRETOL [Suspect]
     Active Substance: CARBAMAZEPINE
     Indication: Tinnitus
     Dosage: 100 MG, BID
     Route: 048
     Dates: start: 20240118, end: 20240121
  2. TEGRETOL [Suspect]
     Active Substance: CARBAMAZEPINE
     Dosage: 200 MG, BID
     Route: 048
     Dates: start: 20240122, end: 20240128

REACTIONS (13)
  - Drug eruption [Recovering/Resolving]
  - Hyperpyrexia [Recovering/Resolving]
  - Dizziness [Recovering/Resolving]
  - Somnolence [Recovering/Resolving]
  - Rash [Unknown]
  - Pruritus [Unknown]
  - Temperature intolerance [Unknown]
  - Papule [Unknown]
  - Mouth ulceration [Unknown]
  - Rash erythematous [Unknown]
  - Genital ulceration [Unknown]
  - Erythema [Unknown]
  - Pyrexia [Unknown]

NARRATIVE: CASE EVENT DATE: 20240126
